FAERS Safety Report 9661047 (Version 2)
Quarter: 2013Q4

REPORT INFORMATION
  Report Type: Report from Study
  Country: CN (occurrence: CN)
  Receive Date: 20131031
  Receipt Date: 20131105
  Transmission Date: 20140711
  Serious: Yes (Hospitalization)
  Sender: FDA-Public Use
  Company Number: CN-GLAXOSMITHKLINE-B0936056A

PATIENT
  Age: 68 Year
  Sex: Male
  Weight: 68 kg

DRUGS (10)
  1. FLUTICASONE FUROATE [Suspect]
     Indication: CHRONIC OBSTRUCTIVE PULMONARY DISEASE
     Dates: start: 20130724, end: 20131028
  2. ASPIRIN ENTERIC COATED [Concomitant]
     Indication: PERCUTANEOUS CORONARY INTERVENTION
     Dosage: .1G PER DAY
     Route: 048
  3. CLOPIDOGREL [Concomitant]
     Indication: PERCUTANEOUS CORONARY INTERVENTION
     Dosage: 75MCG PER DAY
     Route: 048
  4. BETALOC [Concomitant]
     Indication: HYPERTENSION
     Dosage: 12.5MCG PER DAY
     Route: 048
  5. VALSARTAN [Concomitant]
     Indication: HYPERTENSION
     Route: 048
  6. FLUVASTATIN SODIUM [Concomitant]
     Indication: PRODUCT USED FOR UNKNOWN INDICATION
     Route: 048
  7. ISOSORBIDE MONONITRATE [Concomitant]
     Indication: CORONARY ARTERY DISEASE
     Route: 048
  8. FLUTAMIDE [Concomitant]
     Indication: PROSTATE CANCER
     Route: 048
  9. GOSERELIN [Concomitant]
     Indication: PROSTATE CANCER
     Dosage: 3.6MCG IN THE MORNING
     Route: 058
     Dates: start: 201009
  10. ZOLEDRONIC ACID [Concomitant]
     Indication: PROSTATE CANCER
     Dosage: 4MCG IN THE MORNING
     Route: 042
     Dates: start: 201009

REACTIONS (1)
  - Angina unstable [Recovered/Resolved]
